FAERS Safety Report 14560460 (Version 3)
Quarter: 2018Q1

REPORT INFORMATION
  Report Type: Report from Study
  Country: None (occurrence: CA)
  Receive Date: 20180222
  Receipt Date: 20180319
  Transmission Date: 20180509
  Serious: Yes (Hospitalization)
  Sender: FDA-Public Use
  Company Number: CA-ABBVIE-18K-028-2262012-00

PATIENT
  Age: 59 Year
  Sex: Female
  Weight: 79.4 kg

DRUGS (2)
  1. HUMIRA [Suspect]
     Active Substance: ADALIMUMAB
     Route: 058
     Dates: start: 201802
  2. HUMIRA [Suspect]
     Active Substance: ADALIMUMAB
     Indication: CROHN^S DISEASE
     Route: 058
     Dates: start: 20140221, end: 2018

REACTIONS (9)
  - Decreased appetite [Not Recovered/Not Resolved]
  - Tremor [Unknown]
  - Crohn^s disease [Recovering/Resolving]
  - Pulse abnormal [Unknown]
  - Body temperature abnormal [Unknown]
  - Crying [Unknown]
  - Gait disturbance [Unknown]
  - Blood pressure abnormal [Unknown]
  - Back pain [Unknown]

NARRATIVE: CASE EVENT DATE: 201802
